FAERS Safety Report 6965126-7 (Version None)
Quarter: 2010Q3

REPORT INFORMATION
  Report Type: 
  Country: None (occurrence: None)
  Receive Date: 20100903
  Receipt Date: 20100826
  Transmission Date: 20110219
  Serious: Yes (Death, Life-Threatening, Hospitalization)
  Sender: FDA-Public Use
  Company Number: DE-PFIZER INC-2008044244

PATIENT
  Age: 52 Year
  Sex: Male
  Weight: 83 kg

DRUGS (7)
  1. IRINOTECAN HCL [Suspect]
     Indication: COLORECTAL CANCER METASTATIC
     Dosage: 180 MG/M2, 1X/DAY, BI-WEEKLY
     Route: 042
     Dates: start: 20071203, end: 20080506
  2. CETUXIMAB [Suspect]
     Indication: COLORECTAL CANCER METASTATIC
     Dosage: 250 MG/M2, 1X/DAY, BI-WEEKLY
     Route: 042
     Dates: start: 20071203, end: 20080506
  3. FLUOROURACIL [Suspect]
     Indication: COLORECTAL CANCER METASTATIC
     Dosage: 2400 MG/M2, 1X/DAY, BI-WEEKLY
     Route: 042
     Dates: start: 20071203, end: 20080506
  4. FLUOROURACIL [Suspect]
     Dosage: 400 MG/M2, BI-WEEKLY
     Route: 040
     Dates: start: 20071203, end: 20080506
  5. FOLINIC ACID [Suspect]
     Indication: COLORECTAL CANCER METASTATIC
     Dosage: 400 MG/M2, 1X/DAY, BI-WEEKLY
     Route: 042
     Dates: start: 20071203, end: 20080506
  6. PASPERTIN [Concomitant]
     Dosage: 20 MG, UNK
     Dates: start: 20071203, end: 20080506
  7. ZOFRAN [Concomitant]
     Dosage: 8 MG, UNK
     Dates: start: 20071203, end: 20080506

REACTIONS (1)
  - CEREBROVASCULAR ACCIDENT [None]
